FAERS Safety Report 10174897 (Version 1)
Quarter: 2014Q2

REPORT INFORMATION
  Report Type: Spontaneous
  Country: AU (occurrence: AU)
  Receive Date: 20140515
  Receipt Date: 20140515
  Transmission Date: 20141212
  Serious: Yes (Other)
  Sender: FDA-Public Use
  Company Number: AU-BAYER-2014-070016

PATIENT
  Sex: Female

DRUGS (7)
  1. ACETYLSALICYLIC ACID (} 100 MG) [Suspect]
     Indication: ANTIPHOSPHOLIPID SYNDROME
     Dosage: DAILY DOSE 100 MG
  2. ENOXAPARIN [Concomitant]
     Indication: ANTIPHOSPHOLIPID SYNDROME
     Dosage: 60 MG (APPROXIMATELY 1 MG/KG) TWICE DAILY
  3. HYDROXYCHLOROQUINE [Concomitant]
     Indication: SYSTEMIC LUPUS ERYTHEMATOSUS
     Dosage: DAILY DOSE 400 MG
  4. PREDNISOLONE [Concomitant]
     Dosage: DAILY DOSE 50 MG
  5. PREDNISOLONE [Concomitant]
     Dosage: 10 MG EVERY FORTNIGHTLY
  6. PREDNISOLONE [Concomitant]
     Dosage: 20 MG EVERY FORTNIGHTLY
  7. PREDNISOLONE [Concomitant]
     Dosage: DECREASED BY 5 MG EVERY 2 WEEKS

REACTIONS (5)
  - Foetal growth restriction [None]
  - Exposure during pregnancy [None]
  - Off label use [None]
  - Placental infarction [None]
  - Deep vein thrombosis [None]
